FAERS Safety Report 7950668-8 (Version None)
Quarter: 2011Q4

REPORT INFORMATION
  Report Type: 
  Country: None (occurrence: None)
  Receive Date: 20111201
  Receipt Date: 20111121
  Transmission Date: 20120403
  Serious: Yes (Hospitalization)
  Sender: FDA-Public Use
  Company Number: US-BAYER-2011-055955

PATIENT
  Age: 38 Year
  Sex: Female
  Weight: 72.562 kg

DRUGS (6)
  1. YASMIN [Suspect]
     Indication: ACNE
     Dosage: UNK
     Dates: start: 20070701, end: 20070801
  2. LISINOPRIL AND HYDROCHLOROTHIAZIDE [Concomitant]
  3. LISINOPRIL [Concomitant]
     Indication: HYPERTENSION
     Dosage: UNK
     Dates: start: 20010101
  4. EFFEXOR [Concomitant]
     Dosage: UNK
     Dates: start: 20060101
  5. YAZ [Suspect]
     Indication: ACNE
     Dosage: UNK
     Dates: start: 20070701, end: 20070801
  6. EFFEXOR [Concomitant]
     Indication: DEPRESSION
     Dosage: UNK
     Dates: start: 20020101

REACTIONS (3)
  - PAIN [None]
  - INJURY [None]
  - GALLBLADDER DISORDER [None]
